FAERS Safety Report 8178421-3 (Version None)
Quarter: 2012Q1

REPORT INFORMATION
  Report Type: 
  Country: None (occurrence: None)
  Receive Date: 20120301
  Receipt Date: 20120224
  Transmission Date: 20120608
  Serious: Yes (Hospitalization)
  Sender: FDA-Public Use
  Company Number: US-ABBOTT-12P-163-0908675-00

PATIENT
  Age: 44 Year
  Sex: Female

DRUGS (5)
  1. ALLEGRA [Concomitant]
     Indication: HYPERSENSITIVITY
  2. PRILOSEC [Concomitant]
     Indication: PRODUCT USED FOR UNKNOWN INDICATION
  3. CALCIUM +D [Concomitant]
     Indication: PRODUCT USED FOR UNKNOWN INDICATION
  4. LORTAB [Concomitant]
     Indication: PAIN
  5. HUMIRA [Suspect]
     Indication: CROHN'S DISEASE
     Dates: start: 20111128

REACTIONS (4)
  - DIARRHOEA [None]
  - INFLAMMATION [None]
  - ABDOMINAL PAIN [None]
  - HAEMATOCHEZIA [None]
